FAERS Safety Report 7685541-6 (Version None)
Quarter: 2011Q3

REPORT INFORMATION
  Report Type: 
  Country: None (occurrence: None)
  Receive Date: 20110816
  Receipt Date: 20110802
  Transmission Date: 20111222
  Serious: Yes (Hospitalization)
  Sender: FDA-Public Use
  Company Number: FR-PFIZER INC-2010120382

PATIENT
  Age: 48 Year
  Sex: Female

DRUGS (8)
  1. ATARAX [Suspect]
     Dosage: 2 PERFUSIONS
     Route: 042
     Dates: start: 20100611
  2. PARACETAMOL [Concomitant]
     Dosage: 1 G, UNK
     Dates: start: 20100610
  3. URIDOZ [Suspect]
     Indication: DYSURIA
     Dosage: 3 G, SINGLE INTAKE
     Route: 048
     Dates: start: 20100610, end: 20100610
  4. URIDOZ [Suspect]
     Indication: PYREXIA
  5. PARACETAMOL [Concomitant]
     Dosage: 1 G, UNK
     Dates: start: 20100611
  6. IBUPROFEN [Concomitant]
     Dosage: 400 MG, UNK
     Dates: start: 20100610
  7. BACTRIM DS [Suspect]
     Dosage: 1 UNIT SINGLE INTAKE
     Route: 048
     Dates: start: 20100611, end: 20100611
  8. PHLOROGLUCINOL [Suspect]
     Dosage: 80 MG, UNK
     Route: 048
     Dates: start: 20100610, end: 20100611

REACTIONS (1)
  - ANGIOEDEMA [None]
